FAERS Safety Report 7297888-6 (Version None)
Quarter: 2011Q1

REPORT INFORMATION
  Report Type: 
  Country: None (occurrence: None)
  Receive Date: 20110217
  Receipt Date: 20110211
  Transmission Date: 20110831
  Serious: Yes (Other)
  Sender: FDA-Public Use
  Company Number: US-JNJFOC-20110204227

PATIENT
  Sex: Female
  Weight: 48.99 kg

DRUGS (3)
  1. TOPAMAX [Concomitant]
     Indication: CONVULSION
     Route: 048
  2. FENTANYL-100 [Suspect]
     Indication: MIGRAINE
     Route: 062
  3. FENTANYL-100 [Suspect]
     Indication: NECK PAIN
     Route: 062

REACTIONS (8)
  - LOSS OF CONSCIOUSNESS [None]
  - INAPPROPRIATE SCHEDULE OF DRUG ADMINISTRATION [None]
  - WRONG TECHNIQUE IN DRUG USAGE PROCESS [None]
  - WITHDRAWAL SYNDROME [None]
  - SKIN BURNING SENSATION [None]
  - PARAESTHESIA [None]
  - PRODUCT ADHESION ISSUE [None]
  - STARING [None]
